FAERS Safety Report 25273429 (Version 1)
Quarter: 2025Q2

REPORT INFORMATION
  Report Type: Spontaneous
  Country: US (occurrence: None)
  Receive Date: 20250505
  Receipt Date: 20250505
  Transmission Date: 20250716
  Serious: Yes (Death)
  Sender: FDA-CTU
  Company Number: None

PATIENT
  Age: 67 Year
  Sex: Female

DRUGS (9)
  1. HUMIRA [Suspect]
     Active Substance: ADALIMUMAB
     Indication: Rheumatoid arthritis
     Dosage: 40 MG EVERY OTHER WEEK SUBCUTANEOUS
     Route: 058
     Dates: start: 20240206, end: 20250502
  2. ALPRAZOLAM [Concomitant]
     Active Substance: ALPRAZOLAM
  3. INSULIN ASPART [Concomitant]
     Active Substance: INSULIN ASPART
  4. OZEMPIC [Concomitant]
     Active Substance: SEMAGLUTIDE
  5. XARELTO [Concomitant]
     Active Substance: RIVAROXABAN
  6. GABAPENTI N 800 [Concomitant]
  7. HYDROCODONE BITARTRATE AND ACETAMINOPHEN [Concomitant]
     Active Substance: ACETAMINOPHEN\HYDROCODONE BITARTRATE
  8. BISOPROLOL [Concomitant]
     Active Substance: BISOPROLOL
  9. CALCITRIOL [Concomitant]
     Active Substance: CALCITRIOL

REACTIONS (3)
  - Staphylococcal infection [None]
  - General physical health deterioration [None]
  - Renal failure [None]

NARRATIVE: CASE EVENT DATE: 20250502
